FAERS Safety Report 9126650 (Version 1)
Quarter: 2013Q1

REPORT INFORMATION
  Report Type: Spontaneous
  Country: SE (occurrence: SE)
  Receive Date: 20130117
  Receipt Date: 20130117
  Transmission Date: 20140127
  Serious: Yes (Hospitalization, Other)
  Sender: FDA-Public Use
  Company Number: SE-PFIZER INC-2013019168

PATIENT
  Age: 32 Year
  Sex: Male

DRUGS (3)
  1. XANOR [Suspect]
     Dosage: 4 TABLETS SINGLE DOSE
  2. STILNOCT [Suspect]
     Dosage: 30 MG, SINGLE
  3. TRAMADOL [Suspect]
     Dosage: 8 G, SINGLE

REACTIONS (2)
  - Suicide attempt [Recovered/Resolved]
  - Vomiting [Unknown]
